FAERS Safety Report 6377367-0 (Version None)
Quarter: 2009Q3

REPORT INFORMATION
  Report Type: 
  Country: None (occurrence: None)
  Receive Date: 20090923
  Receipt Date: 20090923
  Transmission Date: 20100115
  Serious: No
  Sender: FDA-Public Use
  Company Number: None

PATIENT
  Age: 61 Year
  Sex: Male
  Weight: 88.5 kg

DRUGS (11)
  1. INSULIN ASPART [Suspect]
     Indication: TYPE 1 DIABETES MELLITUS
     Dosage: SSI-H QID PRN
     Dates: start: 20090708
  2. LANTUS [Suspect]
     Indication: TYPE 1 DIABETES MELLITUS
     Dosage: 45 UNITS SQ QHS
     Dates: start: 20090710
  3. HEPARIN [Concomitant]
  4. CALCITRIOL [Concomitant]
  5. DIPHENHYDRAMINE HCL [Concomitant]
  6. LACTULOSE [Concomitant]
  7. NADOLOL [Concomitant]
  8. PREDNISONE [Concomitant]
  9. RANITIDINE [Concomitant]
  10. SENNA [Concomitant]
  11. SPIRONOLACTONE [Concomitant]

REACTIONS (4)
  - BLOOD GLUCOSE DECREASED [None]
  - LETHARGY [None]
  - ROAD TRAFFIC ACCIDENT [None]
  - TIBIA FRACTURE [None]
